FAERS Safety Report 10162112 (Version 1)
Quarter: 2014Q2

REPORT INFORMATION
  Report Type: Spontaneous
  Country: US (occurrence: None)
  Receive Date: 20140507
  Receipt Date: 20140507
  Transmission Date: 20141212
  Serious: Yes (Other)
  Sender: FDA-Public Use
  Company Number: 001724764A

PATIENT
  Age: 46 Year
  Sex: Female

DRUGS (2)
  1. MB ANTIOXIDANT DAY CREME SPF 20 [Suspect]
     Route: 061
     Dates: start: 20140401, end: 20140405
  2. MB SKIN BRIGHTENING DECOLLETE + NECK TREATMENT SPF 15 [Suspect]
     Route: 061
     Dates: start: 20140401, end: 20140405

REACTIONS (3)
  - Acne [None]
  - Dyspnoea [None]
  - Anaphylactic reaction [None]
